FAERS Safety Report 15155130 (Version 1)
Quarter: 2018Q3

REPORT INFORMATION
  Report Type: Spontaneous
  Country: HU (occurrence: HU)
  Receive Date: 20180717
  Receipt Date: 20180717
  Transmission Date: 20181010
  Serious: Yes (Hospitalization)
  Sender: FDA-Public Use
  Company Number: HU-PFIZER INC-2018283314

PATIENT
  Age: 78 Year
  Sex: Female

DRUGS (1)
  1. SALAZOPYRIN [Suspect]
     Active Substance: SULFASALAZINE
     Indication: MUSCULOSKELETAL PAIN

REACTIONS (3)
  - Rash [Not Recovered/Not Resolved]
  - Malaise [Unknown]
  - Pyrexia [Unknown]
